FAERS Safety Report 10318061 (Version 2)
Quarter: 2014Q4

REPORT INFORMATION
  Report Type: Other
  Country: US (occurrence: US)
  Receive Date: 20140719
  Receipt Date: 20141209
  Transmission Date: 20150528
  Serious: Yes (Death, Hospitalization, Other)
  Sender: FDA-Public Use
  Company Number: US-GSKPPD-2014GSK009355

PATIENT
  Age: 65 Year
  Sex: Female
  Weight: 93.07 kg

DRUGS (6)
  1. ISOSORBIDE [Concomitant]
     Active Substance: ISOSORBIDE
  2. DEMADEX [Concomitant]
     Active Substance: TORSEMIDE
  3. HYDRALAZINE [Concomitant]
     Active Substance: HYDRALAZINE HYDROCHLORIDE
  4. AVANDIA [Suspect]
     Active Substance: ROSIGLITAZONE MALEATE
     Indication: DIABETES MELLITUS
     Dosage: DATES OF AVANDIA USE COULD NOT BE CONFIRMED IN RECORDS REVIEWED.
     Route: 048
     Dates: end: 2007
  5. NORVASC [Concomitant]
     Active Substance: AMLODIPINE BESYLATE
  6. COREG [Concomitant]
     Active Substance: CARVEDILOL

REACTIONS (2)
  - Cardiovascular disorder [Fatal]
  - Cardiac failure congestive [Recovered/Resolved]

NARRATIVE: CASE EVENT DATE: 20070528
